FAERS Safety Report 6243176-6 (Version None)
Quarter: 2009Q2

REPORT INFORMATION
  Report Type: 
  Country: None (occurrence: None)
  Receive Date: 20090624
  Receipt Date: 20090401
  Transmission Date: 20091009
  Serious: Yes (Hospitalization)
  Sender: FDA-Public Use
  Company Number: TR-ELI_LILLY_AND_COMPANY-TR200906002614

PATIENT
  Age: 87 Year
  Sex: Female

DRUGS (6)
  1. HUMALOG [Suspect]
     Indication: DIABETES MELLITUS
     Dosage: 4 U, EACH MORNING
     Route: 058
     Dates: start: 20080318
  2. HUMALOG [Suspect]
     Dosage: 4 U, NOON
     Route: 058
     Dates: start: 20080318
  3. HUMALOG [Suspect]
     Dosage: 4 U, EACH EVENING
     Route: 058
     Dates: start: 20080318
  4. LANTUS [Concomitant]
     Indication: DIABETES MELLITUS
     Dosage: 10 U, EACH EVENING
     Route: 065
  5. NORVASC [Concomitant]
     Indication: HYPERTENSION
     Dosage: UNK, DAILY (1/D)
     Route: 065
  6. VITAMINS NOS [Concomitant]
     Dosage: UNK, UNKNOWN
     Route: 065

REACTIONS (2)
  - HOSPITALISATION [None]
  - INJECTION SITE HAEMATOMA [None]
